FAERS Safety Report 7208171-9 (Version None)
Quarter: 2011Q1

REPORT INFORMATION
  Report Type: 
  Country: None (occurrence: None)
  Receive Date: 20110104
  Receipt Date: 20101222
  Transmission Date: 20110831
  Serious: Yes (Hospitalization, Other)
  Sender: FDA-Public Use
  Company Number: US-BAYER-2010-007031

PATIENT
  Sex: Female

DRUGS (1)
  1. BETASERON [Suspect]
     Indication: RELAPSING-REMITTING MULTIPLE SCLEROSIS
     Dosage: 8 MIU, QOD
     Dates: start: 19931124

REACTIONS (9)
  - INJECTION SITE INDURATION [None]
  - INJECTION SITE PAIN [None]
  - PYREXIA [None]
  - INJECTION SITE NECROSIS [None]
  - INJECTION SITE ERYTHEMA [None]
  - SEPSIS [None]
  - INJECTION SITE REACTION [None]
  - INJECTION SITE INFLAMMATION [None]
  - UPPER RESPIRATORY TRACT INFECTION [None]
